FAERS Safety Report 5891654-1 (Version None)
Quarter: 2008Q3

REPORT INFORMATION
  Report Type: 
  Country: None (occurrence: None)
  Receive Date: 20080922
  Receipt Date: 20080917
  Transmission Date: 20090109
  Serious: Yes (Other)
  Sender: FDA-Public Use
  Company Number: GB-BRISTOL-MYERS SQUIBB COMPANY-14338925

PATIENT
  Age: 15 Year
  Sex: Male

DRUGS (4)
  1. ARIPIPRAZOLE [Suspect]
     Indication: PSYCHOTIC DISORDER
     Route: 048
     Dates: start: 20080805, end: 20080822
  2. DIAZEPAM [Concomitant]
     Indication: AGITATION
     Route: 048
     Dates: start: 20080815
  3. OLANZAPINE [Concomitant]
     Indication: PSYCHOTIC DISORDER
     Route: 048
     Dates: start: 20080714
  4. RISPERIDONE [Concomitant]
     Indication: PSYCHOTIC DISORDER
     Route: 048
     Dates: start: 20080623, end: 20080728

REACTIONS (4)
  - AGGRESSION [None]
  - DISINHIBITION [None]
  - ELEVATED MOOD [None]
  - MENTAL IMPAIRMENT [None]
